FAERS Safety Report 4852573-2 (Version None)
Quarter: 2005Q4

REPORT INFORMATION
  Report Type: 
  Country: None (occurrence: None)
  Receive Date: 20051213
  Receipt Date: 20051201
  Transmission Date: 20060501
  Serious: Yes (Other)
  Sender: FDA-Public Use
  Company Number: PHHO2005US18852

PATIENT
  Age: 59 Year
  Sex: Female
  Weight: 123 kg

DRUGS (5)
  1. ALISKIREN VS RAMIPRIL [Suspect]
     Indication: ESSENTIAL HYPERTENSION
     Dosage: CODE NOT BROKEN
     Route: 048
     Dates: start: 20050502, end: 20051201
  2. ESIDRIX [Suspect]
     Dosage: 25 MG / DAY
     Route: 048
     Dates: end: 20051201
  3. EFFEXOR [Concomitant]
     Indication: DEPRESSION
  4. PREVACID [Concomitant]
     Indication: ANTACID THERAPY
  5. TYLENOL [Concomitant]

REACTIONS (2)
  - ANAEMIA [None]
  - GASTRIC ULCER [None]
